FAERS Safety Report 9007246 (Version 1)
Quarter: 2013Q1

REPORT INFORMATION
  Report Type: Spontaneous
  Country: US (occurrence: US)
  Receive Date: 20130110
  Receipt Date: 20130110
  Transmission Date: 20140127
  Serious: Yes (Death)
  Sender: FDA-Public Use
  Company Number: US-PFIZER INC-2013004475

PATIENT
  Age: 32 Year
  Sex: Female

DRUGS (2)
  1. DEXTROMETHORPHAN HBR [Suspect]
  2. METHAMPHETAMINE [Suspect]

REACTIONS (3)
  - Drug abuse [Fatal]
  - Cardiac arrest [Fatal]
  - Respiratory arrest [Fatal]
